FAERS Safety Report 5647263-2 (Version None)
Quarter: 2008Q1

REPORT INFORMATION
  Report Type: 
  Country: None (occurrence: None)
  Receive Date: 20080131
  Receipt Date: 20071204
  Transmission Date: 20080703
  Serious: No
  Sender: FDA-Public Use
  Company Number: 163-21880-07120174

PATIENT
  Age: 59 Year
  Sex: Female

DRUGS (1)
  1. REVLIMID [Suspect]
     Indication: MULTIPLE MYELOMA
     Dosage: 25 MG, DAILY X 21/28 DAYS, ORAL
     Route: 048
     Dates: start: 20071108

REACTIONS (6)
  - ASTHMA [None]
  - DYSGEUSIA [None]
  - GASTROENTERITIS VIRAL [None]
  - MUSCLE SPASMS [None]
  - STOMACH DISCOMFORT [None]
  - UPPER RESPIRATORY TRACT INFECTION [None]
